FAERS Safety Report 5078271-0 (Version None)
Quarter: 2006Q3

REPORT INFORMATION
  Report Type: 
  Country: None (occurrence: None)
  Receive Date: 20060811
  Receipt Date: 20060724
  Transmission Date: 20061208
  Serious: No
  Sender: FDA-Public Use
  Company Number: US-JNJFOC-20060602135

PATIENT
  Sex: Male

DRUGS (5)
  1. DURAGESIC-100 [Suspect]
     Indication: PAIN
     Route: 062
  2. ULTRAM [Concomitant]
     Indication: PAIN
  3. DILANTIN [Concomitant]
     Route: 048
  4. FLEXERIL [Concomitant]
     Route: 048
  5. ULTRAM ER [Concomitant]
     Indication: HEADACHE
     Route: 048

REACTIONS (5)
  - APPLICATION SITE ERYTHEMA [None]
  - FEELING JITTERY [None]
  - HYPERHIDROSIS [None]
  - JOINT STIFFNESS [None]
  - PALLOR [None]
